FAERS Safety Report 15834883 (Version 1)
Quarter: 2019Q1

REPORT INFORMATION
  Report Type: Spontaneous
  Country: US (occurrence: US)
  Receive Date: 20190116
  Receipt Date: 20190116
  Transmission Date: 20190417
  Serious: No
  Sender: FDA-Public Use
  Company Number: US-PFIZER INC-2019018280

PATIENT
  Age: 63 Year
  Sex: Female

DRUGS (1)
  1. ESTRADIOL. [Suspect]
     Active Substance: ESTRADIOL
     Indication: MENOPAUSAL SYMPTOMS
     Dosage: ^THE LOWEST STRENGTH^
     Dates: start: 2012

REACTIONS (5)
  - Abdominal distension [Unknown]
  - Weight increased [Unknown]
  - Fluid retention [Unknown]
  - Vaginal haemorrhage [Unknown]
  - Abdominal pain upper [Unknown]
